FAERS Safety Report 5091935-8 (Version None)
Quarter: 2006Q3

REPORT INFORMATION
  Report Type: 
  Country: None (occurrence: None)
  Receive Date: 20060825
  Receipt Date: 20060808
  Transmission Date: 20061208
  Serious: Yes (Hospitalization, Other)
  Sender: FDA-Public Use
  Company Number: AND_0405_2006

PATIENT
  Age: 15 Year
  Sex: Female

DRUGS (2)
  1. METFORMIN HCL [Suspect]
     Dosage: 14.5 G ONCE PO
     Route: 048
  2. GLIPIZIDE [Suspect]
     Dosage: 375 MG ONCE PO
     Route: 048

REACTIONS (6)
  - ANXIETY [None]
  - BLOOD GLUCOSE DECREASED [None]
  - HYPERHIDROSIS [None]
  - INCORRECT DOSE ADMINISTERED [None]
  - SELF-MEDICATION [None]
  - VOMITING [None]
